FAERS Safety Report 5694865-3 (Version None)
Quarter: 2008Q2

REPORT INFORMATION
  Report Type: 
  Country: None (occurrence: None)
  Receive Date: 20080404
  Receipt Date: 20080108
  Transmission Date: 20081010
  Serious: No
  Sender: FDA-Public Use
  Company Number: A0701956A

PATIENT
  Age: 7 Year
  Sex: Male

DRUGS (3)
  1. ADVAIR HFA [Suspect]
     Indication: ASTHMA
     Dosage: 2PUFF PER DAY
     Route: 055
     Dates: start: 20080102
  2. PULMICORT [Concomitant]
  3. ALBUTEROL [Concomitant]

REACTIONS (2)
  - OFF LABEL USE [None]
  - PAIN IN EXTREMITY [None]
